FAERS Safety Report 23109860 (Version 3)
Quarter: 2025Q1

REPORT INFORMATION
  Report Type: Spontaneous
  Country: US (occurrence: US)
  Receive Date: 20231026
  Receipt Date: 20250102
  Transmission Date: 20250408
  Serious: No
  Sender: SANOFI AVENTIS
  Company Number: US-SA-2023SA322505

PATIENT
  Sex: Male

DRUGS (16)
  1. DUPIXENT [Suspect]
     Active Substance: DUPILUMAB
     Indication: Dermatitis atopic
     Dosage: 300 MG, QOW
     Route: 058
  2. OZEMPIC [Concomitant]
     Active Substance: SEMAGLUTIDE
  3. ADVAIR HFA [Concomitant]
     Active Substance: FLUTICASONE PROPIONATE\SALMETEROL XINAFOATE
  4. ALLOPURINOL [Concomitant]
     Active Substance: ALLOPURINOL
  5. COMBIGAN [Concomitant]
     Active Substance: BRIMONIDINE TARTRATE\TIMOLOL MALEATE
  6. DILTIAZEM HYDROCHLORIDE [Concomitant]
     Active Substance: DILTIAZEM HYDROCHLORIDE
  7. LATANOPROST [Concomitant]
     Active Substance: LATANOPROST
  8. LISINOPRIL [Concomitant]
     Active Substance: LISINOPRIL
  9. LOVASTATIN [Concomitant]
     Active Substance: LOVASTATIN
  10. METOPROLOL [Concomitant]
     Active Substance: METOPROLOL
  11. PRILOSEC OTC [Concomitant]
     Active Substance: OMEPRAZOLE MAGNESIUM
  12. PROAIR DIGIHALER [Concomitant]
     Active Substance: ALBUTEROL SULFATE
  13. VALACYCLOVIR [Concomitant]
     Active Substance: VALACYCLOVIR HYDROCHLORIDE
  14. XARELTO [Concomitant]
     Active Substance: RIVAROXABAN
  15. HYDROCHLOROTHIAZIDE [Concomitant]
     Active Substance: HYDROCHLOROTHIAZIDE
  16. DIFLUPREDNATE [Concomitant]
     Active Substance: DIFLUPREDNATE

REACTIONS (2)
  - Skin fissures [Unknown]
  - Product dose omission in error [Unknown]
